FAERS Safety Report 17576637 (Version 1)
Quarter: 2020Q1

REPORT INFORMATION
  Report Type: Spontaneous
  Country: US (occurrence: US)
  Receive Date: 20200319
  Receipt Date: 20200319
  Transmission Date: 20200409
  Serious: No
  Sender: FDA-Public Use
  Company Number: None

PATIENT
  Sex: Male

DRUGS (1)
  1. SILDENAFIL CITRATE 20MG AUROBINDO PHARMA [Suspect]
     Active Substance: SILDENAFIL CITRATE
     Indication: PULMONARY ARTERIAL HYPERTENSION
     Dosage: ?          OTHER DOSE:1 TABLET;?
     Route: 048
     Dates: start: 20191218, end: 20200213

REACTIONS (2)
  - Adverse drug reaction [None]
  - Therapy cessation [None]
